FAERS Safety Report 8866136 (Version 2)
Quarter: 2013Q1

REPORT INFORMATION
  Report Type: Report from Study
  Country: PL (occurrence: PL)
  Receive Date: 20121025
  Receipt Date: 20130221
  Transmission Date: 20140127
  Serious: Yes (Other)
  Sender: FDA-Public Use
  Company Number: PL-ROCHE-1146018

PATIENT
  Age: 51 Year
  Sex: Male

DRUGS (5)
  1. RITUXIMAB [Suspect]
     Indication: PRODUCT USED FOR UNKNOWN INDICATION
     Route: 065
     Dates: start: 201005
  2. CYCLOPHOSPHAMIDE [Concomitant]
     Route: 065
     Dates: start: 201003
  3. VINCRISTINE [Concomitant]
     Route: 065
     Dates: start: 201003
  4. PREDNISONE [Concomitant]
     Route: 065
     Dates: start: 201003
  5. DOXORUBICIN [Concomitant]
     Route: 065
     Dates: start: 201005

REACTIONS (3)
  - Cardiac disorder [Unknown]
  - Infection [Unknown]
  - Nervous system disorder [Unknown]
